FAERS Safety Report 9483933 (Version 1)
Quarter: 2013Q3

REPORT INFORMATION
  Report Type: Spontaneous
  Country: US (occurrence: US)
  Receive Date: 20130828
  Receipt Date: 20130828
  Transmission Date: 20140515
  Serious: Yes (Hospitalization)
  Sender: FDA-Public Use
  Company Number: CHPA2013US013480

PATIENT
  Age: 75 Year
  Sex: Female

DRUGS (1)
  1. GAS-X ULTRA STRENGTH [Suspect]
     Indication: FLATULENCE
     Dosage: UNK; UNK
     Route: 048
     Dates: start: 20130825, end: 20130825

REACTIONS (2)
  - Flatulence [Unknown]
  - Drug ineffective [Unknown]
